FAERS Safety Report 4736270-X (Version None)
Quarter: 2005Q3

REPORT INFORMATION
  Report Type: 
  Country: None (occurrence: None)
  Receive Date: 20050802
  Receipt Date: 20050721
  Transmission Date: 20060218
  Serious: Yes (Hospitalization)
  Sender: FDA-Public Use
  Company Number: 2005082657

PATIENT
  Age: 35 Year
  Sex: Male
  Weight: 82 kg

DRUGS (1)
  1. ZITHROMAX [Suspect]
     Indication: LUNG INFECTION
     Dosage: 500 MG (500 MG, DAILY), ORAL
     Route: 048
     Dates: start: 20041109, end: 20041101

REACTIONS (13)
  - BLOOD BILIRUBIN INCREASED [None]
  - BRUCELLOSIS [None]
  - CHILLS [None]
  - DRUG TOXICITY [None]
  - HEPATIC PAIN [None]
  - HYPERLIPIDAEMIA [None]
  - JAUNDICE [None]
  - LIPASE INCREASED [None]
  - LIPID METABOLISM DISORDER [None]
  - LIVER DISORDER [None]
  - PAIN IN EXTREMITY [None]
  - SKIN EXFOLIATION [None]
  - SPLENOMEGALY [None]
